FAERS Safety Report 13755069 (Version 1)
Quarter: 2017Q3

REPORT INFORMATION
  Report Type: Spontaneous
  Country: JP (occurrence: JP)
  Receive Date: 20170714
  Receipt Date: 20170714
  Transmission Date: 20171127
  Serious: Yes (Hospitalization, Other)
  Sender: FDA-Public Use
  Company Number: JP-APOTEX-2017AP015020

PATIENT

DRUGS (8)
  1. LENDORMIN [Suspect]
     Active Substance: BROTIZOLAM
     Dosage: 1.505 MG, SINGLE
     Route: 048
     Dates: start: 20170627, end: 20170627
  2. LONASEN [Suspect]
     Active Substance: BLONANSERIN
     Dosage: 76 MG, SINGLE
     Route: 048
     Dates: start: 20170627, end: 20170627
  3. LENDORMIN [Suspect]
     Active Substance: BROTIZOLAM
     Indication: DEPRESSION
     Dosage: UNK
     Route: 048
  4. LORAZEPAM. [Suspect]
     Active Substance: LORAZEPAM
     Indication: DEPRESSION
     Dosage: UNK
     Route: 048
  5. LORAZEPAM. [Suspect]
     Active Substance: LORAZEPAM
     Dosage: 12.5 MG, SINGLE
     Route: 048
     Dates: start: 20170627, end: 20170627
  6. PAROXETINE HYDROCHLORIDE TABLET [Suspect]
     Active Substance: PAROXETINE HYDROCHLORIDE
     Indication: DEPRESSION
     Dosage: UNK
     Route: 048
  7. LONASEN [Suspect]
     Active Substance: BLONANSERIN
     Indication: DEPRESSION
     Dosage: UNK
     Route: 048
  8. PAROXETINE HYDROCHLORIDE TABLET [Suspect]
     Active Substance: PAROXETINE HYDROCHLORIDE
     Dosage: 500 MG, SINGLE
     Route: 048
     Dates: start: 20170627, end: 20170627

REACTIONS (6)
  - Vomiting [Recovering/Resolving]
  - Intentional overdose [Unknown]
  - Blood creatine phosphokinase increased [Recovered/Resolved]
  - Depressed level of consciousness [Recovered/Resolved]
  - Somnolence [Recovered/Resolved]
  - Gait disturbance [Recovering/Resolving]

NARRATIVE: CASE EVENT DATE: 20170627
